FAERS Safety Report 4769109-7 (Version None)
Quarter: 2005Q3

REPORT INFORMATION
  Report Type: 
  Country: None (occurrence: None)
  Receive Date: 20050912
  Receipt Date: 20040914
  Transmission Date: 20060218
  Serious: Yes (Life-Threatening, Hospitalization)
  Sender: FDA-Public Use
  Company Number: 2004-BP-08264BP

PATIENT
  Age: 41 Year
  Sex: Male
  Weight: 93.89 kg

DRUGS (1)
  1. VIRAMUNE [Suspect]
     Indication: HIV INFECTION
     Dosage: 400 MG (200 MG,200 MG BID), PO
     Route: 048
     Dates: start: 20030821, end: 20040301

REACTIONS (2)
  - HEPATIC FAILURE [None]
  - HEPATITIS [None]
